FAERS Safety Report 23670631 (Version 1)
Quarter: 2024Q1

REPORT INFORMATION
  Report Type: Spontaneous
  Country: US (occurrence: US)
  Receive Date: 20240326
  Receipt Date: 20240326
  Transmission Date: 20240410
  Serious: No
  Sender: FDA-Public Use
  Company Number: US-SANOFI-01983042

PATIENT
  Age: 77 Year
  Sex: Male

DRUGS (1)
  1. LANTUS SOLOSTAR [Suspect]
     Active Substance: INSULIN GLARGINE
     Indication: Type 2 diabetes mellitus
     Dosage: 5 UNITS IN THE MORNING AND 36 UNITS AT NIGHT BID AND DRUG TREATMENT DURATION:FEW DAYS
     Route: 058

REACTIONS (3)
  - Accidental exposure to product [Unknown]
  - Exposure via skin contact [Unknown]
  - Off label use [Unknown]
